FAERS Safety Report 4676902-8 (Version None)
Quarter: 2005Q2

REPORT INFORMATION
  Report Type: 
  Country: None (occurrence: None)
  Receive Date: 20050526
  Receipt Date: 20050422
  Transmission Date: 20051028
  Serious: Yes (Other)
  Sender: FDA-Public Use
  Company Number: WAES 0504USA04171

PATIENT
  Age: 50 Year
  Sex: Male

DRUGS (3)
  1. VYTORIN [Suspect]
     Indication: HIGH DENSITY LIPOPROTEIN DECREASED
     Dosage: PO
     Route: 048
     Dates: start: 20050418, end: 20050420
  2. VYTORIN [Suspect]
     Indication: LOW DENSITY LIPOPROTEIN
     Dosage: PO
     Route: 048
     Dates: start: 20050418, end: 20050420
  3. COUMADIN [Concomitant]

REACTIONS (1)
  - HYPERSENSITIVITY [None]
